FAERS Safety Report 10529781 (Version 2)
Quarter: 2014Q4

REPORT INFORMATION
  Report Type: Spontaneous
  Country: US (occurrence: None)
  Receive Date: 20141017
  Receipt Date: 20141107
  Transmission Date: 20150528
  Serious: Yes (Hospitalization)
  Sender: FDA-Public Use
  Company Number: 2014-US-013123

PATIENT
  Sex: Female
  Weight: 90.7 kg

DRUGS (1)
  1. XYREM [Suspect]
     Active Substance: SODIUM OXYBATE
     Indication: FIBROMYALGIA
     Route: 048
     Dates: start: 200509

REACTIONS (2)
  - Hernia [None]
  - Off label use [None]

NARRATIVE: CASE EVENT DATE: 2012
